FAERS Safety Report 4892316-X (Version None)
Quarter: 2006Q1

REPORT INFORMATION
  Report Type: 
  Country: None (occurrence: None)
  Receive Date: 20060125
  Receipt Date: 20060125
  Transmission Date: 20060701
  Serious: Yes (Other)
  Sender: FDA-Public Use
  Company Number: None

PATIENT
  Age: 46 Year
  Sex: Male
  Weight: 108.8633 kg

DRUGS (1)
  1. TELITHROMYCIN [Suspect]
     Indication: UPPER RESPIRATORY TRACT INFECTION
     Dosage: 400 MG TWICE A DAY X 3 D ORAL
     Route: 048
     Dates: start: 20050201

REACTIONS (3)
  - CHROMATURIA [None]
  - JAUNDICE [None]
  - MALAISE [None]
